FAERS Safety Report 22308150 (Version 1)
Quarter: 2023Q2

REPORT INFORMATION
  Report Type: Spontaneous
  Country: DE (occurrence: DE)
  Receive Date: 20230511
  Receipt Date: 20230511
  Transmission Date: 20230722
  Serious: Yes (Hospitalization)
  Sender: FDA-Public Use
  Company Number: DE-drreddys-LIT/GER/23/0164747

PATIENT
  Age: 42 Year
  Sex: Female

DRUGS (16)
  1. BUPROPION [Suspect]
     Active Substance: BUPROPION
     Indication: Depression
  2. BUPROPION [Suspect]
     Active Substance: BUPROPION
  3. QUETIAPINE [Suspect]
     Active Substance: QUETIAPINE
     Indication: Depression
  4. CITALOPRAM [Suspect]
     Active Substance: CITALOPRAM HYDROBROMIDE
     Indication: Mental disorder
  5. VENLAFAXINE [Suspect]
     Active Substance: VENLAFAXINE HYDROCHLORIDE
     Indication: Mental disorder
  6. SERTRALINE [Suspect]
     Active Substance: SERTRALINE HYDROCHLORIDE
     Indication: Mental disorder
  7. MIRTAZAPINE [Suspect]
     Active Substance: MIRTAZAPINE
     Indication: Mental disorder
  8. PREGABALIN [Suspect]
     Active Substance: PREGABALIN
     Indication: Mental disorder
  9. DULOXETINE [Suspect]
     Active Substance: DULOXETINE
     Indication: Mental disorder
  10. ESCITALOPRAM [Suspect]
     Active Substance: ESCITALOPRAM OXALATE
     Indication: Mental disorder
  11. MODAFINIL [Suspect]
     Active Substance: MODAFINIL
     Indication: Depression
  12. DEXTROMETHORPHAN [Suspect]
     Active Substance: DEXTROMETHORPHAN
     Indication: Depression
  13. PROMETHAZINE [Suspect]
     Active Substance: PROMETHAZINE HYDROCHLORIDE
     Indication: Mental disorder
  14. DOXAZOSIN [Suspect]
     Active Substance: DOXAZOSIN MESYLATE
     Indication: Mental disorder
  15. LITHIUM [Suspect]
     Active Substance: LITHIUM
     Indication: Mental disorder
  16. TRAZODONE [Suspect]
     Active Substance: TRAZODONE HYDROCHLORIDE
     Indication: Depression

REACTIONS (5)
  - Toxicity to various agents [Unknown]
  - Depressive symptom [Recovering/Resolving]
  - Blood pressure increased [Recovered/Resolved]
  - Therapy partial responder [Unknown]
  - Drug ineffective [Unknown]
